FAERS Safety Report 8848096 (Version 2)
Quarter: 2015Q3

REPORT INFORMATION
  Report Type: Report from Study
  Country: US (occurrence: US)
  Receive Date: 20121018
  Receipt Date: 20150813
  Transmission Date: 20151125
  Serious: Yes (Other)
  Sender: FDA-Public Use
  Company Number: US-ROCHE-1138990

PATIENT
  Sex: Female
  Weight: 41.7 kg

DRUGS (1)
  1. PROTROPIN [Suspect]
     Active Substance: SOMATREM
     Indication: HYPOPITUITARISM
     Dosage: 0.16 ML
     Route: 058

REACTIONS (1)
  - Septo-optic dysplasia [Unknown]
